FAERS Safety Report 5824221-6 (Version None)
Quarter: 2008Q3

REPORT INFORMATION
  Report Type: 
  Country: None (occurrence: None)
  Receive Date: 20080718
  Receipt Date: 20080409
  Transmission Date: 20090109
  Serious: Yes (Other)
  Sender: FDA-Public Use
  Company Number: US-WYE-H03597308

PATIENT
  Age: 48 Year
  Sex: Male
  Weight: 72.64 kg

DRUGS (2)
  1. ADVIL PM [Suspect]
     Indication: ARTHRALGIA
     Dosage: 2 TABLET 1X PER 1 DAY, ORAL
     Route: 048
     Dates: start: 20080101, end: 20080405
  2. ADVIL EXTRA STRENGTH (IBUPROFEN) [Concomitant]

REACTIONS (2)
  - CHEST PAIN [None]
  - MUSCLE TWITCHING [None]
